FAERS Safety Report 7683637 (Version 7)
Quarter: 2014Q1

REPORT INFORMATION
  Report Type: Report from Study
  Country: EG (occurrence: EG)
  Receive Date: 20101125
  Receipt Date: 20140312
  Transmission Date: 20141002
  Serious: Yes (Death, Hospitalization)
  Sender: FDA-Public Use
  Company Number: PHHO2010EG17640

PATIENT
  Age: 23 Year
  Sex: Male
  Weight: 52 kg

DRUGS (3)
  1. DESFERAL [Suspect]
     Indication: THALASSAEMIA BETA
     Dosage: UNK
     Route: 048
     Dates: start: 20100520, end: 20101115
  2. FOLIC ACID [Concomitant]
  3. INSULIN [Concomitant]

REACTIONS (9)
  - Meningitis [Fatal]
  - Altered state of consciousness [Fatal]
  - Grand mal convulsion [Fatal]
  - Dyspnoea [Fatal]
  - Cardiac arrest [Fatal]
  - Concomitant disease progression [Fatal]
  - Face oedema [Unknown]
  - Jaw disorder [Recovered/Resolved]
  - Tooth infection [Unknown]
